FAERS Safety Report 5382039-5 (Version None)
Quarter: 2007Q3

REPORT INFORMATION
  Report Type: 
  Country: None (occurrence: None)
  Receive Date: 20070709
  Receipt Date: 20070704
  Transmission Date: 20080115
  Serious: Yes (Death, Hospitalization, Other)
  Sender: FDA-Public Use
  Company Number: CAWYE975805JUL07

PATIENT
  Sex: Male
  Weight: 83 kg

DRUGS (1)
  1. TEMSIROLIMUS [Suspect]
     Indication: METASTATIC RENAL CELL CARCINOMA
     Dosage: 25 MG QWK (ONLY ONE DOSE WAS GIVEN)
     Route: 042
     Dates: start: 20070511, end: 20070511

REACTIONS (5)
  - CARDIAC ARREST [None]
  - HAEMATEMESIS [None]
  - NAUSEA [None]
  - SYNCOPE [None]
  - UPPER GASTROINTESTINAL HAEMORRHAGE [None]
